FAERS Safety Report 18418035 (Version 3)
Quarter: 2020Q4

REPORT INFORMATION
  Report Type: Spontaneous
  Country: US (occurrence: US)
  Receive Date: 20201023
  Receipt Date: 20201113
  Transmission Date: 20210114
  Serious: No
  Sender: FDA-Public Use
  Company Number: US-JNJFOC-20201020720

PATIENT
  Age: 3 Decade
  Sex: Male

DRUGS (1)
  1. ZYRTEC [Suspect]
     Active Substance: CETIRIZINE HYDROCHLORIDE
     Indication: MULTIPLE ALLERGIES
     Dosage: START DATE: LIKE FOR 10 YEARS (SAY 2010)?LAST DRUG ADMINISTRATION DATE: ABOUT A WEEK AGO (10-OCT-202
     Route: 048
     Dates: start: 2010

REACTIONS (4)
  - Frustration tolerance decreased [Recovered/Resolved]
  - Aggression [Recovered/Resolved]
  - Product use in unapproved indication [Unknown]
  - Irritability [Recovered/Resolved]

NARRATIVE: CASE EVENT DATE: 2010
